FAERS Safety Report 6734735-2 (Version None)
Quarter: 2010Q2

REPORT INFORMATION
  Report Type: 
  Country: None (occurrence: None)
  Receive Date: 20100519
  Receipt Date: 20100519
  Transmission Date: 20101027
  Serious: Yes (Other)
  Sender: FDA-Public Use
  Company Number: None

PATIENT
  Age: 60 Year
  Sex: Male
  Weight: 82.5547 kg

DRUGS (2)
  1. METHOTREXATE [Suspect]
     Indication: PSORIATIC ARTHROPATHY
     Dosage: 4 TABS, 1ST. WK WORK-UP TO 8 WK.
     Dates: start: 20100419
  2. FOLIC ACID [Suspect]
     Indication: ADVERSE DRUG REACTION
     Dosage: 1 DAILY, 1 MG
     Dates: start: 20100419

REACTIONS (1)
  - RASH GENERALISED [None]
